FAERS Safety Report 21166711 (Version 1)
Quarter: 2022Q3

REPORT INFORMATION
  Report Type: Spontaneous
  Country: US (occurrence: US)
  Receive Date: 20220803
  Receipt Date: 20220803
  Transmission Date: 20221027
  Serious: Yes (Other)
  Sender: FDA-Public Use
  Company Number: US-PFIZER INC-202201026068

PATIENT
  Age: 33 Year
  Sex: Male

DRUGS (3)
  1. PAXLOVID [Suspect]
     Active Substance: NIRMATRELVIR\RITONAVIR
     Indication: COVID-19 treatment
     Dosage: UNK
     Dates: start: 20220727, end: 20220729
  2. TYLENOL [Concomitant]
     Active Substance: ACETAMINOPHEN
     Dosage: UNK
     Route: 048
     Dates: start: 20220727, end: 20220729
  3. FISH OIL [Concomitant]
     Active Substance: FISH OIL
     Dosage: UNK
     Route: 048
     Dates: start: 20220701, end: 20220731

REACTIONS (3)
  - Diarrhoea haemorrhagic [Recovered/Resolved]
  - Proctalgia [Recovered/Resolved]
  - Incorrect product administration duration [Unknown]

NARRATIVE: CASE EVENT DATE: 20220728
